FAERS Safety Report 20943085 (Version 2)
Quarter: 2022Q2

REPORT INFORMATION
  Report Type: Spontaneous
  Country: US (occurrence: US)
  Receive Date: 20220610
  Receipt Date: 20220617
  Transmission Date: 20220721
  Serious: No
  Sender: FDA-Public Use
  Company Number: US-MYLANLABS-2022M1037337

PATIENT
  Age: 93 Year
  Sex: Female
  Weight: 63 kg

DRUGS (5)
  1. CLONIDINE TRANSDERMAL SYSTEM [Suspect]
     Active Substance: CLONIDINE
     Indication: Hypertension
     Dosage: 0.2 MILLIGRAM, QD (2 PATCHES EVERY WEEK)
     Route: 062
     Dates: start: 202202
  2. CLONIDINE TRANSDERMAL SYSTEM [Suspect]
     Active Substance: CLONIDINE
     Dosage: 0.2 MILLIGRAM, QD
     Route: 062
  3. HYDROCORTISONE [Concomitant]
     Active Substance: HYDROCORTISONE
     Indication: Pruritus
     Dosage: UNK
  4. APPLE CIDER VINEGAR PLUS BROMELAIN AN. [Concomitant]
     Dosage: UNK
  5. HONEY [Concomitant]
     Active Substance: HONEY
     Dosage: UNK

REACTIONS (7)
  - Application site mass [Not Recovered/Not Resolved]
  - Application site pruritus [Not Recovered/Not Resolved]
  - Rash [Not Recovered/Not Resolved]
  - Drug intolerance [Unknown]
  - Product dose omission issue [Unknown]
  - Headache [Unknown]
  - Medication error [Unknown]

NARRATIVE: CASE EVENT DATE: 20220201
